FAERS Safety Report 5899219-2 (Version None)
Quarter: 2008Q3

REPORT INFORMATION
  Report Type: 
  Country: None (occurrence: None)
  Receive Date: 20080902
  Receipt Date: 20080313
  Transmission Date: 20090109
  Serious: Yes (Life-Threatening, Hospitalization)
  Sender: FDA-Public Use
  Company Number: KADN20080013

PATIENT
  Age: 40 Year
  Sex: Male
  Weight: 54.4316 kg

DRUGS (6)
  1. KADIAN [Suspect]
     Dosage: 100 MG, 1 CAP BID, PER ORAL
     Route: 048
     Dates: start: 20080201
  2. OXYCODONE HCL [Concomitant]
  3. PREVACID [Concomitant]
  4. ASACOL [Concomitant]
  5. LORAZEPAM [Concomitant]
  6. DIOVAN 320/12.5 [Concomitant]

REACTIONS (1)
  - OVERDOSE [None]
